FAERS Safety Report 15247504 (Version 1)
Quarter: 2018Q3

REPORT INFORMATION
  Report Type: Spontaneous
  Country: US (occurrence: US)
  Receive Date: 20180807
  Receipt Date: 20180807
  Transmission Date: 20181010
  Serious: Yes (Hospitalization, Other)
  Sender: FDA-Public Use
  Company Number: US-AUROBINDO-AUR-APL-2018-037433

PATIENT
  Age: 32 Year
  Sex: Female

DRUGS (3)
  1. LITHIUM. [Concomitant]
     Active Substance: LITHIUM
     Indication: PSYCHIATRIC SYMPTOM
     Route: 065
  2. CLOZAPINE. [Suspect]
     Active Substance: CLOZAPINE
     Indication: BIPOLAR DISORDER
     Dosage: UNK
     Route: 065
  3. BENZATROPINE [Concomitant]
     Active Substance: BENZTROPINE
     Indication: PSYCHIATRIC SYMPTOM
     Route: 065

REACTIONS (6)
  - Drug reaction with eosinophilia and systemic symptoms [Recovered/Resolved]
  - Tachycardia [Recovered/Resolved]
  - Chills [Recovered/Resolved]
  - Hypotension [Recovered/Resolved]
  - Rash [Recovered/Resolved]
  - Pyrexia [Recovered/Resolved]
